FAERS Safety Report 16449727 (Version 2)
Quarter: 2019Q2

REPORT INFORMATION
  Report Type: Spontaneous
  Country: CH (occurrence: CH)
  Receive Date: 20190619
  Receipt Date: 20190621
  Transmission Date: 20190711
  Serious: Yes (Hospitalization, Other)
  Sender: FDA-Public Use
  Company Number: CH-MYLANLABS-2019M1056661

PATIENT
  Age: 77 Year
  Sex: Female

DRUGS (13)
  1. DISTRANEURIN                       /00027501/ [Concomitant]
     Active Substance: CLOMETHIAZOLE
     Dosage: UNK
  2. DALMADORM [Suspect]
     Active Substance: FLURAZEPAM HYDROCHLORIDE
     Indication: PRODUCT USED FOR UNKNOWN INDICATION
     Dosage: 30 MILLIGRAM, QD
     Route: 048
     Dates: end: 20190531
  3. JANUMET [Concomitant]
     Active Substance: METFORMIN HYDROCHLORIDE\SITAGLIPTIN PHOSPHATE
     Dosage: UNK
  4. NEBILET [Concomitant]
     Active Substance: NEBIVOLOL
     Dosage: UNK
  5. PLAVIX [Concomitant]
     Active Substance: CLOPIDOGREL BISULFATE
     Dosage: UNK
  6. QUETIAPIN ACTAVIS [Concomitant]
     Active Substance: QUETIAPINE
     Dosage: UNK
  7. SERESTA [Suspect]
     Active Substance: OXAZEPAM
     Indication: PRODUCT USED FOR UNKNOWN INDICATION
     Dosage: 15 MILLIGRAM, Q3D
     Route: 048
     Dates: end: 20190531
  8. REMERON [Concomitant]
     Active Substance: MIRTAZAPINE
     Dosage: UNK
  9. DIPIPERON [Concomitant]
     Active Substance: PIPAMPERONE
     Dosage: UNK
  10. PREGABALIN PFIZER [Concomitant]
     Active Substance: PREGABALIN
     Dosage: UNK
  11. CIPRALEX [Concomitant]
     Active Substance: ESCITALOPRAM OXALATE
     Dosage: UNK
  12. AMLODIPIN-MEPHA [Concomitant]
     Active Substance: AMLODIPINE MESYLATE
     Dosage: UNK
  13. ENALAPRIL-MEPHA [Concomitant]
     Active Substance: ENALAPRIL
     Dosage: UNK

REACTIONS (2)
  - Respiratory failure [Recovered/Resolved with Sequelae]
  - Sedation complication [Recovered/Resolved with Sequelae]

NARRATIVE: CASE EVENT DATE: 20190531
